FAERS Safety Report 5936869-9 (Version None)
Quarter: 2008Q4

REPORT INFORMATION
  Report Type: 
  Country: None (occurrence: None)
  Receive Date: 20081031
  Receipt Date: 20081024
  Transmission Date: 20090506
  Serious: Yes (Hospitalization)
  Sender: FDA-Public Use
  Company Number: LU-JNJFOC-20081006456

PATIENT
  Sex: Female

DRUGS (1)
  1. SPORANOX [Suspect]
     Indication: DRUG USE FOR UNKNOWN INDICATION
     Route: 065

REACTIONS (1)
  - HOSPITALISATION [None]
